FAERS Safety Report 6942224-5 (Version None)
Quarter: 2010Q3

REPORT INFORMATION
  Report Type: 
  Country: None (occurrence: None)
  Receive Date: 20100823
  Receipt Date: 20100809
  Transmission Date: 20110219
  Serious: Yes (Other)
  Sender: FDA-Public Use
  Company Number: US-1183047

PATIENT
  Age: 74 Year
  Sex: Male

DRUGS (5)
  1. TRIAMCINOLONE ACETONIDE [Suspect]
     Indication: MACULAR DEGENERATION
     Dosage: INTRAOCULAR
     Route: 031
  2. NATACYN [Suspect]
     Indication: EYE INFECTION FUNGAL
     Dosage: OPHTHALMIC
     Route: 047
  3. ITRACONAZOLE [Concomitant]
  4. AMPHOTERICIN B [Concomitant]
  5. VORICONAZOLE [Concomitant]

REACTIONS (11)
  - CONJUNCTIVAL DISORDER [None]
  - CONJUNCTIVITIS [None]
  - DRUG INEFFECTIVE [None]
  - EYE INFECTION FUNGAL [None]
  - EYE INFLAMMATION [None]
  - EYE PAIN [None]
  - INJECTION SITE REACTION [None]
  - NECROTISING SCLERITIS [None]
  - PAIN [None]
  - RETINAL HAEMORRHAGE [None]
  - VISUAL ACUITY REDUCED [None]
